FAERS Safety Report 19267679 (Version 2)
Quarter: 2021Q3

REPORT INFORMATION
  Report Type: Report from Study
  Country: NL (occurrence: NL)
  Receive Date: 20210518
  Receipt Date: 20210714
  Transmission Date: 20211014
  Serious: Yes (Hospitalization)
  Sender: FDA-Public Use
  Company Number: NL-BIOGEN-2021BI01009615

PATIENT
  Age: 42 Year
  Sex: Female

DRUGS (1)
  1. PLEGRIDY [Suspect]
     Active Substance: PEGINTERFERON BETA-1A
     Indication: MULTIPLE SCLEROSIS
     Route: 058
     Dates: start: 20201103, end: 20210504

REACTIONS (2)
  - Breast cancer female [Not Recovered/Not Resolved]
  - Wound infection bacterial [Not Recovered/Not Resolved]

NARRATIVE: CASE EVENT DATE: 20201214
